FAERS Safety Report 15209302 (Version 3)
Quarter: 2019Q3

REPORT INFORMATION
  Report Type: Spontaneous
  Country: US (occurrence: US)
  Receive Date: 20180727
  Receipt Date: 20190902
  Transmission Date: 20191004
  Serious: Yes (Other)
  Sender: FDA-Public Use
  Company Number: US-PFIZER INC-2018297597

PATIENT
  Age: 55 Year
  Sex: Female
  Weight: 120.2 kg

DRUGS (4)
  1. LIDOCAINE HCL [Suspect]
     Active Substance: LIDOCAINE HYDROCHLORIDE
     Indication: NERVE INJURY
  2. LIDOCAINE HCL [Suspect]
     Active Substance: LIDOCAINE HYDROCHLORIDE
     Indication: NERVE BLOCK
     Dosage: 2 %, UNK
     Dates: start: 20160721, end: 20160721
  3. MEPIVACAINE HCL [Suspect]
     Active Substance: MEPIVACAINE HYDROCHLORIDE
     Indication: NERVE BLOCK
     Dosage: 3 %, UNK (3% DOSE UNKNOWN BY INJECTION)
  4. MEPIVACAINE HCL [Suspect]
     Active Substance: MEPIVACAINE HYDROCHLORIDE
     Indication: NERVE INJURY

REACTIONS (16)
  - Joint dislocation [Unknown]
  - Glossodynia [Unknown]
  - Atrial fibrillation [Unknown]
  - Malaise [Unknown]
  - Muscle spasms [Not Recovered/Not Resolved]
  - Hypoaesthesia [Unknown]
  - Pain [Unknown]
  - Muscle tightness [Unknown]
  - Headache [Unknown]
  - Dysphagia [Not Recovered/Not Resolved]
  - Mastication disorder [Unknown]
  - Infection [Unknown]
  - Dental necrosis [Unknown]
  - Discomfort [Unknown]
  - Pain in jaw [Unknown]
  - Teething [Unknown]

NARRATIVE: CASE EVENT DATE: 2016
